FAERS Safety Report 8382458-9 (Version None)
Quarter: 2012Q2

REPORT INFORMATION
  Report Type: 
  Country: None (occurrence: None)
  Receive Date: 20120524
  Receipt Date: 20120517
  Transmission Date: 20120825
  Serious: Yes (Other)
  Sender: FDA-Public Use
  Company Number: PHHY2012BR043025

PATIENT
  Age: 52 Year
  Sex: Female

DRUGS (2)
  1. FORMOTEROL FUMARATE [Suspect]
     Dosage: UNK UKN, UNK (AT NIGHT)
     Dates: start: 20120516
  2. FORMOTEROL FUMARATE [Suspect]
     Indication: DYSPNOEA
     Dosage: 2 DF, (ONE APPLICATION IN THE MORNING AND ANOTHER AT NIGHT)

REACTIONS (3)
  - PNEUMONIA [None]
  - INFLUENZA [None]
  - CHEST DISCOMFORT [None]
